FAERS Safety Report 9806461 (Version 1)
Quarter: 2014Q1

REPORT INFORMATION
  Report Type: Spontaneous
  Country: US (occurrence: US)
  Receive Date: 20140109
  Receipt Date: 20140109
  Transmission Date: 20141002
  Serious: No
  Sender: FDA-Public Use
  Company Number: US-MALLINCKRODT-T201300322

PATIENT
  Sex: 0

DRUGS (1)
  1. OPTIRAY [Suspect]
     Indication: PRODUCT USED FOR UNKNOWN INDICATION
     Dosage: UNK
     Dates: start: 201301, end: 201301

REACTIONS (2)
  - Palpitations [Recovered/Resolved]
  - Anxiety [Recovered/Resolved]
